FAERS Safety Report 6688449-8 (Version None)
Quarter: 2010Q2

REPORT INFORMATION
  Report Type: 
  Country: None (occurrence: None)
  Receive Date: 20100420
  Receipt Date: 20100410
  Transmission Date: 20101027
  Serious: Yes (Other)
  Sender: FDA-Public Use
  Company Number: US-JNJFOC-20100403565

PATIENT
  Sex: Female

DRUGS (1)
  1. TOPAMAX [Suspect]
     Indication: MIGRAINE PROPHYLAXIS
     Route: 048
     Dates: start: 20100101, end: 20100410

REACTIONS (4)
  - DRY EYE [None]
  - IRIS ATROPHY [None]
  - IRIS DISORDER [None]
  - THERAPY CESSATION [None]
